FAERS Safety Report 9328901 (Version 1)
Quarter: 2013Q2

REPORT INFORMATION
  Report Type: Spontaneous
  Country: US (occurrence: US)
  Receive Date: 20130604
  Receipt Date: 20130604
  Transmission Date: 20140414
  Serious: No
  Sender: FDA-Public Use
  Company Number: US-SANOFI-AVENTIS-2013SA019956

PATIENT
  Sex: Female

DRUGS (2)
  1. LANTUS [Suspect]
     Indication: TYPE 2 DIABETES MELLITUS
     Dosage: DOSE:100 UNIT(S)
  2. NOVOLOG [Concomitant]
     Dosage: FREQUENCY-3-4 TIMES/DAY

REACTIONS (3)
  - Weight decreased [Unknown]
  - Blood glucose increased [Recovering/Resolving]
  - Injection site pain [Unknown]
